FAERS Safety Report 7265320-4 (Version None)
Quarter: 2011Q1

REPORT INFORMATION
  Report Type: 
  Country: None (occurrence: None)
  Receive Date: 20110131
  Receipt Date: 20110125
  Transmission Date: 20110831
  Serious: No
  Sender: FDA-Public Use
  Company Number: US-JNJFOC-20110107220

PATIENT
  Sex: Female
  Weight: 63.96 kg

DRUGS (6)
  1. CLONAZEPAM [Concomitant]
     Indication: SLEEP DISORDER THERAPY
     Route: 048
  2. CLONAZEPAM [Concomitant]
     Indication: FEELING OF RELAXATION
     Route: 048
  3. AGGRENOX [Concomitant]
     Indication: ANTICOAGULANT THERAPY
     Dosage: 25MG/200MG
     Route: 048
  4. FENTANYL-100 [Suspect]
     Indication: BACK PAIN
     Route: 062
  5. TOPROL-XL [Concomitant]
     Indication: HYPERTENSION
     Route: 048
  6. NEURONTIN [Concomitant]
     Indication: PAIN IN EXTREMITY
     Route: 048

REACTIONS (2)
  - DRUG INEFFECTIVE [None]
  - DRUG ADMINISTERED AT INAPPROPRIATE SITE [None]
